FAERS Safety Report 17222834 (Version 2)
Quarter: 2020Q1

REPORT INFORMATION
  Report Type: Report from Study
  Country: None (occurrence: CO)
  Receive Date: 20200102
  Receipt Date: 20200113
  Transmission Date: 20200409
  Serious: Yes (Hospitalization, Other)
  Sender: FDA-Public Use
  Company Number: CO-ABBVIE-19K-036-3216032-00

PATIENT
  Sex: Female
  Weight: 56 kg

DRUGS (6)
  1. HUMIRA [Suspect]
     Active Substance: ADALIMUMAB
     Indication: RHEUMATOID ARTHRITIS
     Route: 058
     Dates: start: 20191105
  2. FOLIC ACID. [Concomitant]
     Active Substance: FOLIC ACID
     Indication: RHEUMATOID ARTHRITIS
     Route: 048
  3. DIANOGER [Concomitant]
     Indication: ADVERSE EVENT
     Route: 048
     Dates: start: 201912
  4. METHOTREXATE. [Concomitant]
     Active Substance: METHOTREXATE
     Indication: RHEUMATOID ARTHRITIS
     Route: 048
  5. HUMIRA [Suspect]
     Active Substance: ADALIMUMAB
     Indication: RHEUMATOID ARTHRITIS
     Route: 058
     Dates: end: 20191031
  6. ESCITALOPRAM [Concomitant]
     Active Substance: ESCITALOPRAM OXALATE
     Indication: DEPRESSION
     Route: 048

REACTIONS (8)
  - Seroma [Recovering/Resolving]
  - Inflammation of wound [Unknown]
  - Purulence [Unknown]
  - Suture related complication [Unknown]
  - Ovarian cyst [Recovering/Resolving]
  - Wound complication [Unknown]
  - Asthenia [Unknown]
  - Foreign body reaction [Unknown]

NARRATIVE: CASE EVENT DATE: 2018
